FAERS Safety Report 14781818 (Version 1)
Quarter: 2018Q2

REPORT INFORMATION
  Report Type: Report from Study
  Country: JP (occurrence: JP)
  Receive Date: 20180420
  Receipt Date: 20180420
  Transmission Date: 20180711
  Serious: Yes (Other)
  Sender: FDA-Public Use
  Company Number: JP-ALXN-A201802512AA

PATIENT
  Age: 14 Year
  Sex: Male
  Weight: 40 kg

DRUGS (8)
  1. CELLSEPT [Concomitant]
     Active Substance: MYCOPHENOLATE MOFETIL
     Indication: LIVER TRANSPLANT
  2. SOLIRIS [Suspect]
     Active Substance: ECULIZUMAB
     Indication: ATYPICAL HAEMOLYTIC URAEMIC SYNDROME
     Dosage: 600 MG, QW
     Route: 042
     Dates: start: 20170810, end: 20170817
  3. WIDECILLIN                         /00249602/ [Concomitant]
     Indication: INFECTION PROPHYLAXIS
     Dosage: 333.3 MG, TID
     Route: 048
     Dates: start: 20170806
  4. CICLOSPORIN [Concomitant]
     Active Substance: CYCLOSPORINE
     Indication: TRANSPLANT REJECTION
     Dosage: 10 MG, BID
     Route: 048
     Dates: start: 20170725, end: 20170812
  5. SOLIRIS [Suspect]
     Active Substance: ECULIZUMAB
     Dosage: 900 MG, UNK
     Route: 042
     Dates: start: 20170824
  6. PROGRAF [Concomitant]
     Active Substance: TACROLIMUS\TACROLIMUS ANHYDROUS
     Indication: TRANSPLANT REJECTION
     Dosage: 0.4-0.6 MG, BID
     Route: 048
     Dates: start: 20170525, end: 20170725
  7. WIDECILLIN                         /00249602/ [Concomitant]
     Indication: PROPHYLAXIS
  8. CELLSEPT [Concomitant]
     Active Substance: MYCOPHENOLATE MOFETIL
     Indication: TRANSPLANT REJECTION
     Dosage: 100 MG, BID
     Route: 048
     Dates: start: 20170608

REACTIONS (3)
  - Renal impairment [Not Recovered/Not Resolved]
  - Off label use [Unknown]
  - Intentional product use issue [Unknown]

NARRATIVE: CASE EVENT DATE: 20170810
